FAERS Safety Report 16301686 (Version 1)
Quarter: 2019Q2

REPORT INFORMATION
  Report Type: Spontaneous
  Country: US (occurrence: US)
  Receive Date: 20190511
  Receipt Date: 20190511
  Transmission Date: 20190711
  Serious: Yes (Other)
  Sender: FDA-Public Use
  Company Number: PHEH2019US020321

PATIENT
  Sex: Male

DRUGS (1)
  1. TASIGNA [Suspect]
     Active Substance: NILOTINIB
     Indication: CHRONIC MYELOID LEUKAEMIA
     Dosage: 600 MG, QD
     Route: 048
     Dates: start: 2008, end: 2016

REACTIONS (37)
  - Headache [Unknown]
  - Fatigue [Unknown]
  - Dizziness [Unknown]
  - Cough [Unknown]
  - Night sweats [Unknown]
  - Bronchitis [Unknown]
  - Nasal congestion [Unknown]
  - Erectile dysfunction [Unknown]
  - Chest discomfort [Unknown]
  - Essential hypertension [Unknown]
  - Peripheral swelling [Unknown]
  - Hypoaesthesia [Unknown]
  - Vertigo [Unknown]
  - Diarrhoea [Unknown]
  - Constipation [Unknown]
  - Pneumonia [Unknown]
  - Coronary artery disease [Unknown]
  - Dyspnoea [Unknown]
  - Nausea [Unknown]
  - Amnesia [Unknown]
  - Haemoptysis [Unknown]
  - Joint stiffness [Unknown]
  - Asthenia [Unknown]
  - Depression [Unknown]
  - Mucosal inflammation [Unknown]
  - Scoliosis [Unknown]
  - Oedema [Unknown]
  - Myalgia [Unknown]
  - Chest pain [Unknown]
  - Rash [Unknown]
  - Arthralgia [Unknown]
  - Epistaxis [Unknown]
  - Paraesthesia [Unknown]
  - Abdominal pain [Unknown]
  - Vomiting [Unknown]
  - Hypertension [Unknown]
  - Alopecia [Unknown]
